FAERS Safety Report 5460332-5 (Version None)
Quarter: 2007Q3

REPORT INFORMATION
  Report Type: 
  Country: None (occurrence: None)
  Receive Date: 20070919
  Receipt Date: 20070821
  Transmission Date: 20080115
  Serious: Yes (Hospitalization)
  Sender: FDA-Public Use
  Company Number: US-ASTRAZENECA-2007UW15622

PATIENT
  Age: 56 Year
  Sex: Female

DRUGS (6)
  1. SEROQUEL [Suspect]
     Indication: BIPOLAR DISORDER
     Route: 048
  2. ABILIFY [Concomitant]
     Indication: BIPOLAR DISORDER
  3. DIAZEPAM [Concomitant]
  4. ALTACE [Concomitant]
  5. ATENOLOL [Concomitant]
  6. KLONOPIN [Concomitant]
     Indication: ANXIETY
     Route: 048

REACTIONS (1)
  - ATRIAL FIBRILLATION [None]
